FAERS Safety Report 6936736-8 (Version None)
Quarter: 2010Q3

REPORT INFORMATION
  Report Type: 
  Country: None (occurrence: None)
  Receive Date: 20100818
  Receipt Date: 20100804
  Transmission Date: 20110219
  Serious: Yes (Other)
  Sender: FDA-Public Use
  Company Number: AUR-APL-2010-01969

PATIENT
  Age: 5 Week
  Sex: Male
  Weight: 5.6 kg

DRUGS (2)
  1. RISPERIDONE [Suspect]
     Indication: BIPOLAR DISORDER
     Dosage: TRANSPLACENTAL
     Route: 064
  2. CANNABIS [Concomitant]

REACTIONS (3)
  - AGITATION NEONATAL [None]
  - MATERNAL DRUGS AFFECTING FOETUS [None]
  - NEUTROPENIA NEONATAL [None]
